FAERS Safety Report 5751968-2 (Version None)
Quarter: 2008Q2

REPORT INFORMATION
  Report Type: 
  Country: None (occurrence: None)
  Receive Date: 20080527
  Receipt Date: 20080509
  Transmission Date: 20081010
  Serious: Yes (Death, Hospitalization)
  Sender: FDA-Public Use
  Company Number: 2008AL004476

PATIENT
  Age: 49 Year
  Sex: Male
  Weight: 181.4388 kg

DRUGS (2)
  1. DIGOXIN [Suspect]
     Indication: CARDIAC FAILURE
  2. LANOXIN [Concomitant]

REACTIONS (1)
  - CARDIAC PACEMAKER REPLACEMENT [None]
